FAERS Safety Report 11234795 (Version 1)
Quarter: 2015Q3

REPORT INFORMATION
  Report Type: Spontaneous
  Country: TR (occurrence: TR)
  Receive Date: 20150702
  Receipt Date: 20150702
  Transmission Date: 20151125
  Serious: Yes (Hospitalization, Other)
  Sender: FDA-Public Use
  Company Number: TR-GLAXOSMITHKLINE-TR2015GSK095257

PATIENT
  Age: 12 Year
  Sex: Female

DRUGS (1)
  1. LAMOTRIGINE. [Suspect]
     Active Substance: LAMOTRIGINE
     Indication: EPILEPSY
     Dosage: UNK
     Route: 065

REACTIONS (6)
  - Stevens-Johnson syndrome [Unknown]
  - Necrotising myositis [Unknown]
  - Oral disorder [Unknown]
  - Lagophthalmos [Unknown]
  - Conjunctival disorder [Unknown]
  - Rash generalised [Unknown]
